FAERS Safety Report 15603754 (Version 7)
Quarter: 2019Q4

REPORT INFORMATION
  Report Type: Spontaneous
  Country: US (occurrence: US)
  Receive Date: 20181109
  Receipt Date: 20191202
  Transmission Date: 20200122
  Serious: No
  Sender: FDA-Public Use
  Company Number: US-PFIZER INC-2018462079

PATIENT
  Age: 69 Year
  Sex: Female

DRUGS (1)
  1. BACITRACIN. [Suspect]
     Active Substance: BACITRACIN
     Dosage: UNK
     Dates: start: 20180427

REACTIONS (3)
  - Drug eruption [Unknown]
  - Drug hypersensitivity [Unknown]
  - Urticaria [Unknown]
